FAERS Safety Report 8231902-6 (Version None)
Quarter: 2012Q1

REPORT INFORMATION
  Report Type: 
  Country: None (occurrence: None)
  Receive Date: 20120323
  Receipt Date: 20120316
  Transmission Date: 20120608
  Serious: Yes (Other)
  Sender: FDA-Public Use
  Company Number: DK-JNJFOC-20120309358

PATIENT
  Sex: Male

DRUGS (1)
  1. SPORANOX [Suspect]
     Indication: ASPERGILLOSIS
     Route: 065
     Dates: start: 20101215

REACTIONS (5)
  - OEDEMA PERIPHERAL [None]
  - GAIT DISTURBANCE [None]
  - PNEUMONIA [None]
  - HYPERHIDROSIS [None]
  - DIZZINESS [None]
